FAERS Safety Report 7263422-X (Version None)
Quarter: 2011Q1

REPORT INFORMATION
  Report Type: 
  Country: None (occurrence: None)
  Receive Date: 20110130
  Receipt Date: 20101106
  Transmission Date: 20110831
  Serious: No
  Sender: FDA-Public Use
  Company Number: US-ABBOTT-10P-163-0683913-00

PATIENT
  Age: 49 Year
  Sex: Male

DRUGS (12)
  1. XANAX [Concomitant]
     Indication: ANXIETY
  2. ASA [Concomitant]
     Indication: CARDIAC DISORDER
     Dosage: LOW DOSE
  3. LASIX [Concomitant]
     Indication: FLUID RETENTION
  4. ZOLOFT [Concomitant]
     Indication: DEPRESSION
  5. TRILIPIX [Concomitant]
     Indication: BLOOD CHOLESTEROL
  6. HUMIRA [Suspect]
     Indication: RHEUMATOID ARTHRITIS
     Dates: start: 20090301
  7. ZEMPLAR [Concomitant]
     Indication: HYPOTHYROIDISM
  8. ENALAPRIL MALEATE [Concomitant]
     Indication: BLOOD PRESSURE
  9. LOVASTATIN [Concomitant]
     Indication: BLOOD CHOLESTEROL
  10. NEXIUM [Concomitant]
     Indication: GASTROOESOPHAGEAL REFLUX DISEASE
  11. AMBIEN [Concomitant]
     Indication: INSOMNIA
  12. NOVOLOG BY PUMP [Concomitant]
     Indication: PRODUCT USED FOR UNKNOWN INDICATION

REACTIONS (1)
  - FUNGAL INFECTION [None]
